FAERS Safety Report 9459311 (Version 1)
Quarter: 2013Q3

REPORT INFORMATION
  Report Type: Spontaneous
  Country: BR (occurrence: BR)
  Receive Date: 20130815
  Receipt Date: 20130815
  Transmission Date: 20140515
  Serious: Yes (Hospitalization)
  Sender: FDA-Public Use
  Company Number: BR-ROCHE-1261464

PATIENT
  Age: 25 Year
  Sex: Female

DRUGS (1)
  1. AVASTIN [Suspect]
     Indication: NEUROFIBROMATOSIS
     Route: 065
     Dates: start: 201002

REACTIONS (1)
  - Appendicitis [Unknown]
